FAERS Safety Report 18874978 (Version 1)
Quarter: 2021Q1

REPORT INFORMATION
  Report Type: Spontaneous
  Country: CH (occurrence: CH)
  Receive Date: 20210210
  Receipt Date: 20210210
  Transmission Date: 20210420
  Serious: Yes (Death)
  Sender: FDA-Public Use
  Company Number: CH-GLAXOSMITHKLINE-CH2021GSK024433

PATIENT
  Age: 64 Year
  Sex: Male

DRUGS (9)
  1. ACICLOVIR [Suspect]
     Active Substance: ACYCLOVIR
     Dosage: 5 MG/KG
     Route: 042
  2. ACICLOVIR [Suspect]
     Active Substance: ACYCLOVIR
     Indication: ANTIVIRAL TREATMENT
     Dosage: 10 MG/KG
     Route: 042
  3. CISPLATIN. [Concomitant]
     Active Substance: CISPLATIN
     Indication: CHEMOTHERAPY
     Dosage: UNK
  4. NIVOLUMAB [Concomitant]
     Active Substance: NIVOLUMAB
     Indication: IMMUNE THROMBOCYTOPENIA
     Dosage: UNK
  5. CLARITHROMYCIN. [Concomitant]
     Active Substance: CLARITHROMYCIN
     Indication: ANTIBIOTIC THERAPY
     Dosage: UNK
  6. IPILIMUMAB [Concomitant]
     Active Substance: IPILIMUMAB
     Indication: IMMUNE THROMBOCYTOPENIA
     Dosage: UNK
  7. DEXAMETHASONE. [Concomitant]
     Active Substance: DEXAMETHASONE
     Indication: BRAIN OEDEMA
     Dosage: 12 MG, 1D
  8. AMOXICILINA + CLAVULANIC ACID [Concomitant]
     Active Substance: AMOXICILLIN\CLAVULANIC ACID
     Indication: ANTIBIOTIC THERAPY
     Dosage: UNK
  9. ETOPOSIDE. [Concomitant]
     Active Substance: ETOPOSIDE
     Indication: CHEMOTHERAPY
     Dosage: UNK

REACTIONS (3)
  - General physical health deterioration [Unknown]
  - Herpes simplex reactivation [Fatal]
  - Drug ineffective [Fatal]
